FAERS Safety Report 9309002 (Version 1)
Quarter: 2013Q2

REPORT INFORMATION
  Report Type: Spontaneous
  Country: JP (occurrence: JP)
  Receive Date: 20130524
  Receipt Date: 20130524
  Transmission Date: 20140414
  Serious: Yes (Other)
  Sender: FDA-Public Use
  Company Number: JP-009507513-1305JPN012643

PATIENT
  Age: 25 Year
  Sex: Female

DRUGS (16)
  1. PEPCID [Suspect]
     Dosage: UNK
     Route: 065
     Dates: start: 201111, end: 201112
  2. FOSAMAC TABLETS-5 [Suspect]
     Dosage: UNK
     Route: 065
     Dates: start: 201111, end: 201112
  3. ISONIAZID [Suspect]
     Dosage: UNK
     Route: 065
     Dates: start: 201111, end: 201112
  4. EBASTINE [Suspect]
     Dosage: UNK
     Route: 048
     Dates: start: 201111, end: 201112
  5. SULFAMETHOXAZOLE (+) TRIMETHOPRIM [Suspect]
     Dosage: UNK
     Route: 065
     Dates: start: 201111, end: 201112
  6. DICLOFENAC SODIUM [Concomitant]
     Dosage: UNK
     Dates: start: 201110, end: 201110
  7. INDOMETHACIN [Concomitant]
     Dosage: UNK
     Dates: start: 2011, end: 201111
  8. PREDNISOLONE [Concomitant]
     Dosage: UNK
     Route: 048
     Dates: start: 20111110, end: 20111214
  9. FEXOFENADINE HYDROCHLORIDE [Concomitant]
     Dosage: UNK
     Dates: start: 201111, end: 201111
  10. MINOCYCLINE HYDROCHLORIDE [Concomitant]
     Dosage: UNK
     Dates: start: 201111, end: 201111
  11. AMOXICILLIN [Concomitant]
     Dosage: UNK
     Dates: start: 201110, end: 201111
  12. ACETAMINOPHEN [Concomitant]
     Dosage: UNK
     Dates: start: 201110, end: 201111
  13. LEVOFLOXACIN [Concomitant]
     Dosage: UNK
     Dates: start: 201111, end: 201111
  14. LOXOPROFEN [Concomitant]
     Dosage: UNK
     Dates: start: 201110, end: 201111
  15. CEFTRIAXONE SODIUM [Concomitant]
     Dosage: UNK
     Dates: start: 201110, end: 201111
  16. ZITHROMAC [Concomitant]
     Dosage: UNK
     Dates: start: 201110, end: 201110

REACTIONS (1)
  - Hepatic function abnormal [Recovering/Resolving]
